FAERS Safety Report 7081560-1 (Version None)
Quarter: 2010Q4

REPORT INFORMATION
  Report Type: 
  Country: None (occurrence: None)
  Receive Date: 20101103
  Receipt Date: 20101025
  Transmission Date: 20110411
  Serious: Yes (Hospitalization)
  Sender: FDA-Public Use
  Company Number: US-ASTRAZENECA-2010SE50459

PATIENT
  Sex: Male

DRUGS (3)
  1. ZESTRIL [Suspect]
     Route: 048
  2. FLOMAX [Suspect]
     Route: 065
  3. LITHIUM [Suspect]
     Route: 065

REACTIONS (2)
  - BLOOD PRESSURE [None]
  - MULTIPLE SCLEROSIS [None]
